FAERS Safety Report 25731883 (Version 1)
Quarter: 2025Q3

REPORT INFORMATION
  Report Type: Spontaneous
  Country: JP (occurrence: JP)
  Receive Date: 20250827
  Receipt Date: 20250827
  Transmission Date: 20251020
  Serious: Yes (Hospitalization)
  Sender: PFIZER
  Company Number: JP-PFIZER INC-PV202500084283

PATIENT
  Age: 52 Year
  Sex: Male
  Weight: 60.9 kg

DRUGS (16)
  1. LORBRENA [Suspect]
     Active Substance: LORLATINIB
     Indication: Lung adenocarcinoma
     Dosage: 100 MG, 1X/DAY
     Route: 048
     Dates: start: 20250701
  2. ESOMEPRAZOLE [Concomitant]
     Active Substance: ESOMEPRAZOLE
     Dosage: 20 MG, 1X/DAY, WITHIN 30 MINS AFTER BREAKFAST
  3. CALCIUM CARBONATE\CHOLECALCIFEROL\MAGNESIUM CARBONATE [Concomitant]
     Active Substance: CALCIUM CARBONATE\CHOLECALCIFEROL\MAGNESIUM CARBONATE
     Dosage: 2 DF [DENOTAS CHEWABLE], 1X/DAY, WITHIN 30 MINS AFTER BREAKFAST
  4. SYMPROIC [Concomitant]
     Active Substance: NALDEMEDINE TOSYLATE
     Dosage: 0.2 MG, 1X/DAY, WITHIN 30 MINS AFTER BREAKFAST
  5. LOXOPROFEN [Concomitant]
     Active Substance: LOXOPROFEN
     Dosage: 60 MG, 3X/DAY, WITHIN 30 MINS AFTER BREAKFAST, LUNCH AND DINNER
  6. MAGNESIUM OXIDE [Concomitant]
     Active Substance: MAGNESIUM OXIDE
     Dosage: 330 MG, 3X/DAY, WITHIN 30 MINS AFTER BREAKFAST, LUNCH AND DINNER
  7. OXYCODONE HYDROCHLORIDE [Concomitant]
     Active Substance: OXYCODONE HYDROCHLORIDE
     Dosage: 40 MG, 2X/DAY, WITHIN 30 MINS AFTER BREAKFAST AND DINNER
  8. OXYCODONE HYDROCHLORIDE [Concomitant]
     Active Substance: OXYCODONE HYDROCHLORIDE
     Dosage: 20 MG, 1X/DAY, WITHIN 30 MINS AFTER LUNCH
  9. OXYCODONE HYDROCHLORIDE [Concomitant]
     Active Substance: OXYCODONE HYDROCHLORIDE
     Dosage: 10 MG, 1X/DAY, WITHIN 30 MINS AFTER LUNCH
  10. OXYCODONE HYDROCHLORIDE [Concomitant]
     Active Substance: OXYCODONE HYDROCHLORIDE
     Indication: Analgesic therapy
  11. SENNOSIDE TOWA [Concomitant]
     Dosage: 12 MG, 1X/DAY, WITHIN 30 MINS AFTER BREAKFAST
  12. PREDNISOLONE [Concomitant]
     Active Substance: PREDNISOLONE
     Dosage: 5 MG, 1X/DAY, WITHIN 30 MINS AFTER BREAKFAST
  13. SULFAMETHOXAZOLE\TRIMETHOPRIM [Concomitant]
     Active Substance: SULFAMETHOXAZOLE\TRIMETHOPRIM
     Dosage: 2 DF [BAKTAR MINI], 1X/DAY, WITHIN 30 MINS AFTER BREAKFAST
  14. NOVAMIN [Concomitant]
     Dosage: 5 MG, 3X/DAY, WITHIN 30 MINS BEFORE BREAKFAST, LUNCH AND DINNER
  15. MIROGABALIN BESYLATE [Concomitant]
     Active Substance: MIROGABALIN BESYLATE
     Dosage: 5 MG, 2X/DAY, WITHIN 30 MINS AFTER BREAKFAST AND DINNER
  16. LINZESS [Concomitant]
     Active Substance: LINACLOTIDE
     Dosage: 2 DF, 1X/DAY, WITHIN 30 MINS BEFORE BREAKFAST

REACTIONS (3)
  - Restless legs syndrome [Recovered/Resolved]
  - Low density lipoprotein increased [Unknown]
  - Oedema [Not Recovered/Not Resolved]

NARRATIVE: CASE EVENT DATE: 20250701
